FAERS Safety Report 18690333 (Version 1)
Quarter: 2021Q1

REPORT INFORMATION
  Report Type: Spontaneous
  Country: CN (occurrence: CN)
  Receive Date: 20210101
  Receipt Date: 20210101
  Transmission Date: 20210419
  Serious: Yes (Other)
  Sender: FDA-Public Use
  Company Number: CN-ROCHE-2742363

PATIENT
  Age: 61 Year
  Sex: Male
  Weight: 60 kg

DRUGS (1)
  1. ALECENSA [Suspect]
     Active Substance: ALECTINIB HYDROCHLORIDE
     Indication: LUNG ADENOCARCINOMA
     Route: 048
     Dates: start: 20200808, end: 20201213

REACTIONS (4)
  - Jaundice [Recovering/Resolving]
  - Platelet count increased [Recovering/Resolving]
  - Pruritus [Unknown]
  - Haemolysis [Recovering/Resolving]

NARRATIVE: CASE EVENT DATE: 20201213
